FAERS Safety Report 8549781-6 (Version None)
Quarter: 2012Q3

REPORT INFORMATION
  Report Type: 
  Country: None (occurrence: None)
  Receive Date: 20120730
  Receipt Date: 20120719
  Transmission Date: 20120928
  Serious: Yes (Disabling)
  Sender: FDA-Public Use
  Company Number: ZA-ASTRAZENECA-2012SE49861

PATIENT
  Sex: Male
  Weight: 111 kg

DRUGS (8)
  1. CELEBREX [Concomitant]
     Indication: ANTIINFLAMMATORY THERAPY
     Route: 048
  2. PREXUM PLUS [Concomitant]
     Indication: BLOOD PRESSURE
     Route: 048
  3. TRAMADOL HYDROCHLORIDE/ACETAMINOPHEN [Concomitant]
     Indication: PAIN
     Route: 048
     Dates: start: 20120710
  4. BILICOR [Concomitant]
     Indication: BLOOD PRESSURE
     Route: 048
  5. SIMVASTATIN [Concomitant]
     Route: 048
  6. ASPIRIN [Concomitant]
     Route: 048
  7. GLUCOPHAGE [Concomitant]
     Route: 048
  8. CASODEX [Suspect]
     Indication: PROSTATE CANCER
     Route: 048
     Dates: start: 20120627

REACTIONS (1)
  - NERVE COMPRESSION [None]
